FAERS Safety Report 21404210 (Version 2)
Quarter: 2022Q4

REPORT INFORMATION
  Report Type: Report from Study
  Country: CA (occurrence: CA)
  Receive Date: 20221003
  Receipt Date: 20221014
  Transmission Date: 20230113
  Serious: Yes (Other)
  Sender: FDA-Public Use
  Company Number: CA-BAUSCH-BL-2022-022611

PATIENT
  Age: 36 Year
  Sex: Female
  Weight: 112.93 kg

DRUGS (3)
  1. CONTRAVE [Suspect]
     Active Substance: BUPROPION HYDROCHLORIDE\NALTREXONE HYDROCHLORIDE
     Indication: Weight control
     Dosage: 90/8 MG, 1 TAB IN MORNING (TOOK FOR ABOUT 3 DAYS AND STOPPED IT)
     Route: 048
     Dates: start: 202209, end: 20220918
  2. PROPRANOLOL [Interacting]
     Active Substance: PROPRANOLOL HYDROCHLORIDE
     Indication: Migraine
     Dosage: (1 IN 24 HR)
     Route: 048
  3. VITAMIN B COMPLEX [Concomitant]
     Active Substance: CYANOCOBALAMIN\DEXPANTHENOL\NIACINAMIDE\PYRIDOXINE HYDROCHLORIDE\RIBOFLAVIN 5^-PHOSPHATE SODIUM\THIA
     Indication: Supplementation therapy
     Dosage: (1 IN 1 D)
     Route: 048

REACTIONS (6)
  - Syncope [Recovered/Resolved]
  - Affective disorder [Recovered/Resolved]
  - Urticaria [Recovered/Resolved]
  - Nervousness [Recovered/Resolved]
  - Feeling jittery [Recovered/Resolved]
  - Drug interaction [Unknown]

NARRATIVE: CASE EVENT DATE: 20220901
